FAERS Safety Report 21230714 (Version 1)
Quarter: 2022Q3

REPORT INFORMATION
  Report Type: Spontaneous
  Country: BR (occurrence: BR)
  Receive Date: 20220819
  Receipt Date: 20220819
  Transmission Date: 20221027
  Serious: Yes (Life-Threatening, Hospitalization)
  Sender: FDA-Public Use
  Company Number: BR-STRIDES ARCOLAB LIMITED-2020SP015773

PATIENT
  Age: 70 Year
  Sex: Female

DRUGS (2)
  1. ACETAZOLAMIDE [Suspect]
     Active Substance: ACETAZOLAMIDE
     Indication: Open angle glaucoma
     Dosage: 500 MILLIGRAM, QID FOR 5 DAYS
     Route: 065
  2. ACETAZOLAMIDE [Suspect]
     Active Substance: ACETAZOLAMIDE
     Indication: Postoperative care
     Dosage: 250 MILLIGRAM, QID
     Route: 065

REACTIONS (13)
  - Hypovolaemic shock [Recovered/Resolved]
  - Metabolic encephalopathy [Recovered/Resolved]
  - Respiratory failure [Recovered/Resolved]
  - Contraindicated product administered [Unknown]
  - Azotaemia [Recovered/Resolved]
  - Condition aggravated [Recovered/Resolved]
  - Metabolic acidosis [Recovered/Resolved]
  - Coma [Recovered/Resolved]
  - Nervous system disorder [Recovered/Resolved]
  - Toxicity to various agents [Unknown]
  - Prescribed overdose [Unknown]
  - Renal failure [Recovered/Resolved]
  - Hyperchloraemia [Recovered/Resolved]
